FAERS Safety Report 8936314 (Version 1)
Quarter: 2012Q4

REPORT INFORMATION
  Report Type: Report from Study
  Country: US (occurrence: US)
  Receive Date: 20121130
  Receipt Date: 20121130
  Transmission Date: 20130627
  Serious: Yes (Hospitalization)
  Sender: FDA-Public Use
  Company Number: US-009507513-1211USA010481

PATIENT
  Age: 50 Year
  Sex: Female
  Weight: 70.4 kg

DRUGS (7)
  1. TEMOZOLOMIDE [Suspect]
     Indication: GLIOBLASTOMA
     Dosage: 360 mg, UNK
     Dates: start: 20100817, end: 20100821
  2. BEVACIZUMAB [Suspect]
     Indication: GLIOBLASTOMA
     Dosage: 704 mg, 1 in 2 weeks
     Route: 042
     Dates: start: 20100720, end: 20100831
  3. IRINOTECAN HYDROCHLORIDE [Suspect]
     Indication: GLIOBLASTOMA
     Dosage: 612 mg, 1 in every 2 weeks
     Route: 042
     Dates: start: 20100720, end: 20100831
  4. DECADRON [Concomitant]
  5. CALCIUM (UNSPECIFIED) [Concomitant]
  6. ERGOCALCIFEROL [Concomitant]
  7. DILANTIN [Concomitant]

REACTIONS (4)
  - Transaminases increased [Unknown]
  - Thrombocytopenia [Unknown]
  - Neutropenia [Unknown]
  - Fall [Unknown]
